FAERS Safety Report 5764683-6 (Version None)
Quarter: 2008Q2

REPORT INFORMATION
  Report Type: 
  Country: None (occurrence: None)
  Receive Date: 20080611
  Receipt Date: 20080527
  Transmission Date: 20081010
  Serious: Yes (Other)
  Sender: FDA-Public Use
  Company Number: PHHY2008JP05507

PATIENT
  Sex: Male
  Weight: 45 kg

DRUGS (8)
  1. NEORAL [Suspect]
     Indication: DEMYELINATING POLYNEUROPATHY
     Dosage: 100 MG MORNING, 50 MG EVENING
     Route: 048
     Dates: start: 20080221, end: 20080308
  2. NEORAL [Suspect]
     Dosage: 50 MGX3 CAPSULES
     Route: 048
     Dates: start: 20080221
  3. FLUID/ELECTROLYTE REPLACEMENT THERAPY [Suspect]
  4. FAMOTIDINE [Concomitant]
     Dosage: 2 DF, UNK
     Route: 048
  5. CYANOCOBALAMIN [Concomitant]
     Dosage: 3 DF, UNK
     Route: 048
  6. JUVELA [Concomitant]
     Dosage: 3 DF, UNK
  7. MYSLEE [Concomitant]
  8. MUCOSTA [Concomitant]
     Dosage: 3 DF, UNK
     Route: 048

REACTIONS (3)
  - HYPONATRAEMIA [None]
  - POLYURIA [None]
  - URINE OUTPUT INCREASED [None]
